FAERS Safety Report 6417554-6 (Version None)
Quarter: 2009Q4

REPORT INFORMATION
  Report Type: 
  Country: None (occurrence: None)
  Receive Date: 20091028
  Receipt Date: 20091014
  Transmission Date: 20100525
  Serious: Yes (Other)
  Sender: FDA-Public Use
  Company Number: CL-ROCHE-662631

PATIENT
  Age: 72 Year
  Sex: Female
  Weight: 51 kg

DRUGS (8)
  1. CAPECITABINE [Suspect]
     Indication: COLON CANCER
     Dosage: 2ND CYCLE.
     Route: 048
     Dates: start: 20090901, end: 20090905
  2. OXALIPLATIN [Suspect]
     Indication: COLON CANCER
     Route: 042
  3. ENALAPRIL [Concomitant]
     Route: 048
  4. TIMAROL [Concomitant]
     Dosage: DRUG NAME: ACETAMINOPHEN 325 MG, TRAMADOL 37.5 MG/ CAPSULE (TIMAROL)
     Route: 048
  5. AMITRIPTYLINE [Concomitant]
     Route: 048
  6. PREDNISONE [Concomitant]
     Route: 048
  7. ONDANSETRON [Concomitant]
     Dosage: DRUG NAME: ONDASETRON
     Route: 048
  8. OMEPRAZOLE [Concomitant]
     Route: 048

REACTIONS (5)
  - ANAEMIA [None]
  - BLOOD ALKALINE PHOSPHATASE INCREASED [None]
  - BLOOD BILIRUBIN INCREASED [None]
  - CHROMATURIA [None]
  - JAUNDICE [None]
